FAERS Safety Report 8917587 (Version 4)
Quarter: 2013Q3

REPORT INFORMATION
  Report Type: Spontaneous
  Country: US (occurrence: US)
  Receive Date: 20121119
  Receipt Date: 20130927
  Transmission Date: 20140515
  Serious: No
  Sender: FDA-Public Use
  Company Number: US-009507513-1211USA003642

PATIENT
  Sex: Male

DRUGS (6)
  1. PEGINTRON [Suspect]
     Indication: HEPATITIS C
     Dosage: REDIPEN
     Route: 058
     Dates: start: 20121024, end: 20130703
  2. REBETOL [Suspect]
     Indication: HEPATITIS C
     Dosage: UNK
     Route: 048
     Dates: start: 20121025, end: 20130710
  3. REBETOL [Suspect]
     Dosage: UNK
     Route: 048
     Dates: start: 20050204, end: 20071026
  4. REBETOL [Suspect]
     Dosage: 400 MG, BID
     Route: 048
  5. VICTRELIS [Suspect]
     Indication: HEPATITIS C
     Dosage: UNK
     Route: 048
     Dates: start: 20121117, end: 20130710
  6. PEGASYS [Suspect]
     Indication: HEPATITIS C
     Dosage: UNK
     Dates: start: 20050204, end: 20071026

REACTIONS (20)
  - Therapeutic response decreased [Unknown]
  - Hyperhidrosis [Unknown]
  - Pyrexia [Unknown]
  - Chills [Unknown]
  - Pain [Unknown]
  - Influenza like illness [Unknown]
  - Nausea [Unknown]
  - Fatigue [Unknown]
  - Decreased appetite [Unknown]
  - Asthenia [Unknown]
  - Dysgeusia [Unknown]
  - Dysgeusia [Unknown]
  - Fatigue [Unknown]
  - Neutrophil count decreased [Unknown]
  - Platelet count decreased [Unknown]
  - Mouth ulceration [Unknown]
  - Red blood cell count decreased [Unknown]
  - Weight decreased [Unknown]
  - Dysgeusia [Unknown]
  - Drug dose omission [Unknown]
